FAERS Safety Report 20429571 (Version 2)
Quarter: 2022Q1

REPORT INFORMATION
  Report Type: Spontaneous
  Country: US (occurrence: US)
  Receive Date: 20220204
  Receipt Date: 20220208
  Transmission Date: 20220423
  Serious: Yes (Hospitalization, Other)
  Sender: FDA-Public Use
  Company Number: US-MLMSERVICE-20220121-3333206-1

PATIENT
  Sex: Female

DRUGS (29)
  1. FLUOXETINE [Suspect]
     Active Substance: FLUOXETINE HYDROCHLORIDE
     Indication: Depressed mood
     Dosage: 10 MILLIGRAM, QD
     Route: 048
  2. SERTRALINE [Suspect]
     Active Substance: SERTRALINE HYDROCHLORIDE
     Indication: Schizophrenia
     Dosage: UNK TITRATED UP TO 75MG PO DAILY
     Route: 048
  3. SERTRALINE [Suspect]
     Active Substance: SERTRALINE HYDROCHLORIDE
     Dosage: 75 MILLIGRAM, QD (TITRATED UP TO 75MG PO DAILY)
     Route: 048
  4. SERTRALINE [Suspect]
     Active Substance: SERTRALINE HYDROCHLORIDE
     Dosage: 50 MILLIGRAM, BID
     Route: 048
  5. QUETIAPINE FUMARATE [Suspect]
     Active Substance: QUETIAPINE FUMARATE
     Indication: Schizophrenia
     Dosage: 100 MILLIGRAM, QD AT BEDTIME
     Route: 048
  6. ARIPIPRAZOLE [Suspect]
     Active Substance: ARIPIPRAZOLE
     Indication: Schizophrenia
     Dosage: 5 MILLIGRAM, QD
     Route: 048
  7. ARIPIPRAZOLE [Suspect]
     Active Substance: ARIPIPRAZOLE
     Dosage: 15 MILLIGRAM (GRADUALLY TITRATED UP TO 15 MG )
     Route: 048
  8. OLANZAPINE [Suspect]
     Active Substance: OLANZAPINE
     Indication: Psychotic disorder
     Dosage: 2.5 MILLIGRAM, QD AT BEDTIME (AND TOLD TO FOLLOW-UP WITH OUTPATIENT TREATMENT)
     Route: 048
  9. OLANZAPINE [Suspect]
     Active Substance: OLANZAPINE
     Dosage: 5 MILLIGRAM, QD
     Route: 048
  10. AMILORIDE [Suspect]
     Active Substance: AMILORIDE
     Indication: Schizophrenia
     Dosage: UNK
     Route: 065
  11. CLOZAPINE [Suspect]
     Active Substance: CLOZAPINE
     Indication: Schizophrenia
     Dosage: 12.5 MILLIGRAM, QD AT BEDTIME
     Route: 065
  12. CLOZAPINE [Suspect]
     Active Substance: CLOZAPINE
     Dosage: 300 MILLIGRAM, QD GRADUALLY TITRATED UP TO 300 MG AT BEDTIME
     Route: 065
  13. CLOZAPINE [Suspect]
     Active Substance: CLOZAPINE
     Dosage: 300 MILLIGRAM, QD
     Route: 065
  14. ATOMOXETINE [Suspect]
     Active Substance: ATOMOXETINE
     Indication: Disturbance in attention
     Dosage: 10 MILLIGRAM, QD
     Route: 048
  15. RISPERIDONE [Suspect]
     Active Substance: RISPERIDONE
     Indication: Agitation
     Dosage: 2 MILLIGRAM, QD
     Route: 048
  16. RISPERIDONE [Suspect]
     Active Substance: RISPERIDONE
     Indication: Schizophrenia
     Dosage: 2 MILLIGRAM, BID
     Route: 048
  17. RISPERIDONE [Suspect]
     Active Substance: RISPERIDONE
     Dosage: 0.5 MILLIGRAM, PRN
     Route: 048
  18. RISPERIDONE [Suspect]
     Active Substance: RISPERIDONE
     Dosage: 3 MILLIGRAM, BID
     Route: 048
  19. HALOPERIDOL [Suspect]
     Active Substance: HALOPERIDOL
     Indication: Schizophrenia
     Dosage: 1 MILLIGRAM, QD
     Route: 048
  20. HALOPERIDOL [Suspect]
     Active Substance: HALOPERIDOL
     Dosage: 5 MILLIGRAM, QD
     Route: 048
  21. HALOPERIDOL [Suspect]
     Active Substance: HALOPERIDOL
     Dosage: 10 MILLIGRAM, BID (GRADUALLY TITRATED TO 10 MG PO BID )
     Route: 048
  22. LITHIUM [Suspect]
     Active Substance: LITHIUM
     Indication: Schizophrenia
     Dosage: 450 MILLIGRAM, QD
     Route: 048
  23. LITHIUM [Suspect]
     Active Substance: LITHIUM
     Dosage: 900 MILLIGRAM, QD
     Route: 048
  24. VALPROIC ACID [Concomitant]
     Active Substance: VALPROIC ACID
     Indication: Schizophrenia
     Dosage: 250 MILLIGRAM, QD
     Route: 048
  25. LORAZEPAM [Concomitant]
     Active Substance: LORAZEPAM
     Indication: Schizophrenia
     Dosage: 1 MILLIGRAM, QD
     Route: 048
  26. ACETYLCYSTEINE [Concomitant]
     Active Substance: ACETYLCYSTEINE
     Indication: Schizophrenia
     Dosage: 600 MILLIGRAM, QD
     Route: 048
  27. ACETYLCYSTEINE [Concomitant]
     Active Substance: ACETYLCYSTEINE
     Dosage: GRADUALLY TITRATED UP TO 600 MG THREE TIMES A DAY
     Route: 048
  28. ACETYLCYSTEINE [Concomitant]
     Active Substance: ACETYLCYSTEINE
     Dosage: 600 MILLIGRAM, TID
     Route: 048
  29. BENZTROPINE [Concomitant]
     Active Substance: BENZTROPINE
     Indication: Prophylaxis
     Dosage: 1 MILLIGRAM, QD
     Route: 048

REACTIONS (10)
  - Akathisia [Recovered/Resolved]
  - Energy increased [Recovered/Resolved]
  - Drug ineffective [Unknown]
  - Hypersexuality [Recovered/Resolved]
  - Abnormal behaviour [Recovered/Resolved]
  - Grandiosity [Recovered/Resolved]
  - Impulsive behaviour [Recovered/Resolved]
  - Psychotic disorder [Recovered/Resolved]
  - Salivary hypersecretion [Recovered/Resolved]
  - Sedation [Recovered/Resolved]
